FAERS Safety Report 6565437-3 (Version None)
Quarter: 2010Q1

REPORT INFORMATION
  Report Type: 
  Country: None (occurrence: None)
  Receive Date: 20100201
  Receipt Date: 20100122
  Transmission Date: 20100710
  Serious: Yes (Hospitalization, Other)
  Sender: FDA-Public Use
  Company Number: PHHY2010BR03843

PATIENT
  Sex: Female

DRUGS (2)
  1. FORASEQ [Suspect]
     Dosage: UNK
     Route: 048
     Dates: start: 20091203
  2. PURAN T4 [Concomitant]
     Indication: HYPOTHYROIDISM
     Dosage: 1 DF, DAILY

REACTIONS (8)
  - BLOOD PRESSURE INCREASED [None]
  - DERMATOMYOSITIS [None]
  - DYSPNOEA [None]
  - FATIGUE [None]
  - GAIT DISTURBANCE [None]
  - HYPERSENSITIVITY [None]
  - LUNG DISORDER [None]
  - PULMONARY FUNCTION TEST DECREASED [None]
